FAERS Safety Report 13337226 (Version 1)
Quarter: 2017Q1

REPORT INFORMATION
  Report Type: Spontaneous
  Country: US (occurrence: US)
  Receive Date: 20170314
  Receipt Date: 20170314
  Transmission Date: 20170428
  Serious: Yes (Disabling)
  Sender: FDA-Public Use
  Company Number: None

PATIENT
  Age: 58 Year
  Sex: Male
  Weight: 80.1 kg

DRUGS (23)
  1. MUCINEX [Concomitant]
     Active Substance: GUAIFENESIN
  2. IBUPROFEN. [Concomitant]
     Active Substance: IBUPROFEN
  3. IRON SUPPLEMENT [Concomitant]
     Active Substance: IRON
  4. ATORVASTATIN [Concomitant]
     Active Substance: ATORVASTATIN
  5. METHYLPREDNISOLONE. [Concomitant]
     Active Substance: METHYLPREDNISOLONE
  6. VITAMIN C [Concomitant]
     Active Substance: ASCORBIC ACID
  7. AMINO ACID SUPPLEMENTS [Concomitant]
  8. GLUCOSAMINE CHONDROITIN/MSN [Concomitant]
  9. CIPROFLOXACIN. [Suspect]
     Active Substance: CIPROFLOXACIN
     Indication: SINUSITIS
     Dosage: ?          QUANTITY:90 TABLET(S);?
     Route: 048
     Dates: start: 20170212, end: 20170215
  10. CARVEDILOL. [Concomitant]
     Active Substance: CARVEDILOL
  11. PROBIOTIC [Concomitant]
     Active Substance: PROBIOTICS NOS
  12. ZOLPIDEM [Concomitant]
     Active Substance: ZOLPIDEM\ZOLPIDEM TARTRATE
  13. TRIAMTERENE AND HYDROCHLOROTHIAZIDE [Concomitant]
     Active Substance: HYDROCHLOROTHIAZIDE\TRIAMTERENE
  14. MONTELUKAST [Concomitant]
     Active Substance: MONTELUKAST SODIUM
  15. FLEXERIL [Concomitant]
     Active Substance: CYCLOBENZAPRINE HYDROCHLORIDE
  16. VITAMIN E [Concomitant]
     Active Substance: .ALPHA.-TOCOPHEROL
  17. SELENIUM [Concomitant]
     Active Substance: SELENIUM
  18. FOLIC ACID. [Concomitant]
     Active Substance: FOLIC ACID
  19. MULTI VITAMIN [Concomitant]
     Active Substance: VITAMINS
  20. FISH OIL [Concomitant]
     Active Substance: FISH OIL
  21. CHROMIUM PICOLINATE [Concomitant]
     Active Substance: CHROMIUM PICOLINATE
  22. CALCIUM W/ VITAMIN D [Concomitant]
  23. VITAMIN B COMPLEX [Concomitant]
     Active Substance: CYANOCOBALAMIN\DEXPANTHENOL\NIACINAMIDE\PYRIDOXINE HYDROCHLORIDE\RIBOFLAVIN 5^-PHOSPHATE SODIUM\THIAMINE HYDROCHLORIDE\VITAMIN B COMPLEX

REACTIONS (2)
  - Arthralgia [None]
  - Tendon pain [None]

NARRATIVE: CASE EVENT DATE: 20170215
